FAERS Safety Report 10240134 (Version 1)
Quarter: 2014Q2

REPORT INFORMATION
  Report Type: Spontaneous
  Country: FR (occurrence: FR)
  Receive Date: 20140617
  Receipt Date: 20140617
  Transmission Date: 20141212
  Serious: Yes (Disabling)
  Sender: FDA-Public Use
  Company Number: FR-ROCHE-1417961

PATIENT
  Age: 54 Year
  Sex: Female

DRUGS (2)
  1. AVASTIN [Suspect]
     Indication: GLIOBLASTOMA
     Route: 042
     Dates: start: 201308, end: 20131009
  2. FOTEMUSTINE [Suspect]
     Indication: GLIOBLASTOMA
     Route: 042
     Dates: start: 201308, end: 20131009

REACTIONS (3)
  - Optic neuropathy [Not Recovered/Not Resolved]
  - Thrombocytopenia [Not Recovered/Not Resolved]
  - Blindness [Not Recovered/Not Resolved]
